FAERS Safety Report 11250139 (Version 1)
Quarter: 2015Q3

REPORT INFORMATION
  Report Type: Spontaneous
  Country: US (occurrence: US)
  Receive Date: 20150708
  Receipt Date: 20150708
  Transmission Date: 20151125
  Serious: No
  Sender: FDA-Public Use
  Company Number: US-ELI_LILLY_AND_COMPANY-US200907002096

PATIENT
  Sex: Female

DRUGS (1)
  1. SYMBYAX [Suspect]
     Active Substance: FLUOXETINE HYDROCHLORIDE\OLANZAPINE
     Indication: DECREASED APPETITE
     Dosage: 1 D/F, UNK
     Dates: start: 20090707

REACTIONS (4)
  - Oedema peripheral [Not Recovered/Not Resolved]
  - Off label use [Recovered/Resolved]
  - Dysuria [Not Recovered/Not Resolved]
  - Localised oedema [Not Recovered/Not Resolved]
